FAERS Safety Report 12553428 (Version 1)
Quarter: 2016Q3

REPORT INFORMATION
  Report Type: Spontaneous
  Country: RU (occurrence: RU)
  Receive Date: 20160713
  Receipt Date: 20160713
  Transmission Date: 20161109
  Serious: Yes (Hospitalization, Other)
  Sender: FDA-Public Use
  Company Number: RU-BRISTOL-MYERS SQUIBB COMPANY-BMS-2016-054890

PATIENT
  Age: 61 Year
  Sex: Male

DRUGS (1)
  1. WARFARIN SODIUM. [Suspect]
     Active Substance: WARFARIN SODIUM
     Indication: MITRAL VALVE REPLACEMENT
     Dosage: 7.5 MG, QD
     Route: 065

REACTIONS (5)
  - Spinal cord compression [Unknown]
  - Spinal epidural haematoma [Not Recovered/Not Resolved]
  - Haematoma evacuation [Unknown]
  - Haemorrhagic anaemia [Recovered/Resolved]
  - Packed red blood cell transfusion [Unknown]
